FAERS Safety Report 6924009-9 (Version None)
Quarter: 2010Q3

REPORT INFORMATION
  Report Type: 
  Country: None (occurrence: None)
  Receive Date: 20100813
  Receipt Date: 20100802
  Transmission Date: 20110219
  Serious: Yes (Hospitalization, Other)
  Sender: FDA-Public Use
  Company Number: DE-ELI_LILLY_AND_COMPANY-DE201006005023

PATIENT
  Sex: Female

DRUGS (7)
  1. ALIMTA [Suspect]
     Indication: CERVIX CARCINOMA
     Dosage: 600 MG/M2, UNKNOWN
     Route: 042
  2. ALIMTA [Suspect]
     Dosage: 320 MG/M2, UNKNOWN
     Route: 042
     Dates: start: 20100603
  3. HELIXOR M [Concomitant]
  4. ZINC [Concomitant]
  5. SELENIUM [Concomitant]
  6. KEVATRIL [Concomitant]
     Indication: PREMEDICATION
     Dosage: 1 MG, UNK
  7. DEXAMETHASONE [Concomitant]
     Indication: PREMEDICATION
     Dosage: 4 MG, UNK

REACTIONS (10)
  - CARDIOVASCULAR INSUFFICIENCY [None]
  - GASTROENTERITIS RADIATION [None]
  - ILEUS PARALYTIC [None]
  - MALIGNANT NEOPLASM PROGRESSION [None]
  - OFF LABEL USE [None]
  - PANCYTOPENIA [None]
  - PERITONITIS BACTERIAL [None]
  - RENAL FAILURE ACUTE [None]
  - SEPTIC SHOCK [None]
  - TOXIC SKIN ERUPTION [None]
